FAERS Safety Report 4544997-8 (Version None)
Quarter: 2005Q1

REPORT INFORMATION
  Report Type: 
  Country: None (occurrence: None)
  Receive Date: 20050104
  Receipt Date: 20041229
  Transmission Date: 20050727
  Serious: Yes (Death)
  Sender: FDA-Public Use
  Company Number: USA-2004-0018186

PATIENT
  Age: 46 Year
  Sex: Male

DRUGS (9)
  1. OXYCONTIN [Suspect]
     Indication: PAIN
     Dosage: 80 MG, Q8H
  2. LORTAB [Concomitant]
  3. PROTONIX [Concomitant]
  4. BEXTRA [Concomitant]
  5. SOMA [Concomitant]
  6. ADVAIR (SALMETEROL XINAFOATE, FLUTICASONE PROPIONATE) [Concomitant]
  7. COMBIVENT [Concomitant]
  8. FIORICET [Concomitant]
  9. VALIUM [Concomitant]

REACTIONS (1)
  - DEATH [None]
